FAERS Safety Report 9403742 (Version 1)
Quarter: 2013Q3

REPORT INFORMATION
  Report Type: Spontaneous
  Country: FR (occurrence: FR)
  Receive Date: 20130717
  Receipt Date: 20130717
  Transmission Date: 20140515
  Serious: Yes (Hospitalization, Congenital Anomaly)
  Sender: FDA-Public Use
  Company Number: FR-ASTRAZENECA-2013SE51446

PATIENT
  Age: 0 Week
  Sex: Male
  Weight: 1.1 kg

DRUGS (5)
  1. MOPRAL [Suspect]
     Route: 064
  2. CLOMID [Suspect]
     Indication: OVULATION INDUCTION
     Route: 064
  3. RHOPHYLAC [Suspect]
     Route: 064
  4. RHOPHYLAC [Suspect]
     Route: 064
  5. UVEDOSE [Concomitant]
     Route: 064

REACTIONS (4)
  - Premature baby [Unknown]
  - Hypospadias [Recovered/Resolved]
  - Genitalia external ambiguous [Recovered/Resolved]
  - Growth retardation [Recovered/Resolved]
